FAERS Safety Report 20038594 (Version 1)
Quarter: 2021Q4

REPORT INFORMATION
  Report Type: Report from Study
  Country: US (occurrence: None)
  Receive Date: 20211105
  Receipt Date: 20211105
  Transmission Date: 20220303
  Serious: Yes (Death, Hospitalization)
  Sender: FDA-Public Use
  Company Number: US-ROCHE-2715037

PATIENT
  Age: 37 Year
  Sex: Male
  Weight: 67.4 kg

DRUGS (14)
  1. VENETOCLAX [Suspect]
     Active Substance: VENETOCLAX
     Indication: B-cell lymphoma refractory
     Dosage: CYCLE 1, D2-14, ?ON 08/OCT/2020, THE DOSE OF VENETOCLAX WAS INTERRUPTED.?ON 27/OCT/2020, 05/NOV/2020
     Route: 048
     Dates: start: 20200711
  2. VENETOCLAX [Suspect]
     Active Substance: VENETOCLAX
     Indication: Diffuse large B-cell lymphoma
  3. OBINUTUZUMAB [Suspect]
     Active Substance: OBINUTUZUMAB
     Indication: B-cell lymphoma refractory
     Dosage: ON 26/SEP/2020, THE DOSE OF OBINUTUZUMAB WAS INTERRUPTED.?ON 24/OCT/2020,  RECEIVED MOST RECENT DOSE
     Route: 042
     Dates: start: 20200710
  4. OBINUTUZUMAB [Suspect]
     Active Substance: OBINUTUZUMAB
     Indication: Diffuse large B-cell lymphoma
  5. IBRUTINIB [Suspect]
     Active Substance: IBRUTINIB
     Indication: B-cell lymphoma refractory
     Dosage: ON 08/OCT/2020, DOSE OF IBRUTINIB WAS INTERRUPTED. ?ON 05/NOV/2020, RECEIVED MOST RECENT DOSE OF IBR
     Route: 048
     Dates: start: 20200710
  6. IBRUTINIB [Suspect]
     Active Substance: IBRUTINIB
     Indication: Diffuse large B-cell lymphoma
  7. PREDNISONE [Suspect]
     Active Substance: PREDNISONE
     Indication: B-cell lymphoma refractory
     Dosage: ON 01/OCT/2020, DOSE OF PREDNISONE WAS INTERRUPTED. ?ON 24/OCT/2020 AND 29/OCT/2020, RECEIVED MOST R
     Route: 048
     Dates: start: 20200710
  8. PREDNISONE [Suspect]
     Active Substance: PREDNISONE
     Indication: Diffuse large B-cell lymphoma
  9. LENALIDOMIDE [Suspect]
     Active Substance: LENALIDOMIDE
     Indication: B-cell lymphoma refractory
     Dosage: ON 08/OCT/2020, THE DOSE OF LENALIDOMIDE WAS INTERRUPTED. ?ON 05/NOV/2020, RECEIVED MOST RECENT DOSE
     Route: 048
     Dates: start: 20200710
  10. LENALIDOMIDE [Suspect]
     Active Substance: LENALIDOMIDE
     Indication: Diffuse large B-cell lymphoma
  11. OXACILLIN [Concomitant]
     Active Substance: OXACILLIN SODIUM
     Dates: start: 20201106
  12. BACLOFEN [Concomitant]
     Active Substance: BACLOFEN
     Indication: Hiccups
     Route: 048
  13. VALTREX [Concomitant]
     Active Substance: VALACYCLOVIR HYDROCHLORIDE
     Route: 048
  14. ATOVAQUONE [Concomitant]
     Active Substance: ATOVAQUONE

REACTIONS (8)
  - Disease progression [Fatal]
  - Cardiogenic shock [Fatal]
  - Pericardial effusion malignant [Fatal]
  - Soft tissue infection [Recovering/Resolving]
  - Pneumonia [Recovering/Resolving]
  - Bacteraemia [Recovering/Resolving]
  - Central nervous system infection [Recovering/Resolving]
  - Sepsis [Recovered/Resolved]

NARRATIVE: CASE EVENT DATE: 20201015
